FAERS Safety Report 4595060-1 (Version None)
Quarter: 2005Q1

REPORT INFORMATION
  Report Type: 
  Country: None (occurrence: None)
  Receive Date: 20050223
  Receipt Date: 20050208
  Transmission Date: 20050727
  Serious: Yes (Hospitalization)
  Sender: FDA-Public Use
  Company Number: 105953ISR

PATIENT
  Age: 55 Year
  Sex: Male

DRUGS (3)
  1. FLUOROURACIL [Suspect]
     Indication: RENAL CELL CARCINOMA STAGE UNSPECIFIED
     Dosage: 1275 MG/M2, INTRAVENOUS (NOS)
     Route: 042
     Dates: start: 20040803, end: 20040823
  2. INTERFERON ALFA-2B [Suspect]
     Indication: RENAL CELL CARCINOMA STAGE UNSPECIFIED
     Dosage: SUBCUTANEOUS
     Route: 058
     Dates: start: 20040706, end: 20040827
  3. PROLEUKIN [Suspect]
     Indication: RENAL CELL CARCINOMA STAGE UNSPECIFIED
     Dosage: SUBCUTANEOUS
     Route: 058
     Dates: start: 20040708, end: 20040731

REACTIONS (7)
  - ANOREXIA [None]
  - BLOOD ALKALINE PHOSPHATASE INCREASED [None]
  - GAMMA-GLUTAMYLTRANSFERASE INCREASED [None]
  - HAEMOPTYSIS [None]
  - NAUSEA [None]
  - PNEUMONIA [None]
  - VOMITING [None]
